FAERS Safety Report 11070872 (Version 5)
Quarter: 2015Q2

REPORT INFORMATION
  Report Type: Spontaneous
  Country: IT (occurrence: IT)
  Receive Date: 20150428
  Receipt Date: 20150626
  Transmission Date: 20150821
  Serious: Yes (Other)
  Sender: FDA-Public Use
  Company Number: IT-009507513-1504ITA021763

PATIENT
  Age: 69 Year
  Sex: Female
  Weight: 45 kg

DRUGS (4)
  1. HYDROCHLOROTHIAZIDE (+) VALSARTAN [Concomitant]
     Active Substance: HYDROCHLOROTHIAZIDE\VALSARTAN
     Dosage: 1 TABLET, QD
     Dates: start: 20150209
  2. DEXAMETHASONE. [Concomitant]
     Active Substance: DEXAMETHASONE
     Dosage: TOTAL DAILY DOSE: 20 MG, 4 MG VIAL, 5 VIALS IN 100 ML OF NACI
     Route: 042
     Dates: start: 20150417, end: 20150417
  3. TORVAST [Concomitant]
     Active Substance: ATORVASTATIN
     Dosage: 1 TABLET, QD
     Dates: start: 20150209
  4. IVEMEND [Suspect]
     Active Substance: FOSAPREPITANT DIMEGLUMINE
     Indication: PROPHYLAXIS OF NAUSEA AND VOMITING
     Dosage: 150 MG, CYCLICAL, IN 250 ML OF NACI
     Route: 042
     Dates: start: 20150417, end: 20150417

REACTIONS (3)
  - Hypoglycaemia [Recovering/Resolving]
  - Epilepsy [Recovered/Resolved]
  - Aphasia [Recovered/Resolved]

NARRATIVE: CASE EVENT DATE: 20150417
